FAERS Safety Report 6717599-2 (Version None)
Quarter: 2010Q2

REPORT INFORMATION
  Report Type: 
  Country: None (occurrence: None)
  Receive Date: 20100510
  Receipt Date: 20100429
  Transmission Date: 20101027
  Serious: Yes (Life-Threatening)
  Sender: FDA-Public Use
  Company Number: US-JNJFOC-20100500709

PATIENT
  Sex: Male
  Weight: 122.02 kg

DRUGS (2)
  1. TAPENTADOL [Suspect]
     Route: 048
  2. TAPENTADOL [Suspect]
     Indication: DIABETIC NEUROPATHY
     Route: 048

REACTIONS (6)
  - CHEST PAIN [None]
  - COLD SWEAT [None]
  - DIZZINESS [None]
  - DYSPNOEA [None]
  - ELECTROCARDIOGRAM CHANGE [None]
  - VISION BLURRED [None]
